FAERS Safety Report 7346207-5 (Version None)
Quarter: 2011Q1

REPORT INFORMATION
  Report Type: 
  Country: None (occurrence: None)
  Receive Date: 20110311
  Receipt Date: 20110308
  Transmission Date: 20110831
  Serious: Yes (Life-Threatening, Hospitalization, Other)
  Sender: FDA-Public Use
  Company Number: US-ELI_LILLY_AND_COMPANY-US201012005444

PATIENT
  Sex: Female

DRUGS (17)
  1. FORTEO [Suspect]
     Dosage: 20 UG, DAILY (1/D)
     Dates: start: 20101207
  2. PREDNISONE [Concomitant]
     Dosage: UNK, UNKNOWN
     Route: 065
  3. SYNTHROID [Concomitant]
     Dosage: UNK, UNKNOWN
     Route: 065
  4. CIMZIA [Concomitant]
     Indication: RHEUMATOID ARTHRITIS
     Dosage: UNK, ONCE A MONTH
     Route: 065
  5. NASONEX [Concomitant]
     Dosage: UNK, UNKNOWN
     Route: 065
  6. ASTELIN [Concomitant]
     Dosage: UNK, UNKNOWN
     Route: 065
  7. ADVAIR DISKUS 100/50 [Concomitant]
     Indication: HYPERSENSITIVITY
     Dosage: UNK, DAILY (1/D)
     Route: 065
  8. FORTEO [Suspect]
     Indication: OSTEOPOROSIS
     Dosage: 20 UG, DAILY (1/D)
     Route: 058
     Dates: start: 20101119, end: 20101130
  9. VENTOLIN [Concomitant]
     Dosage: UNK, UNKNOWN
     Route: 065
  10. SINGULAIR [Concomitant]
     Dosage: UNK, UNKNOWN
     Route: 065
  11. TERBINAFINE HCL [Concomitant]
     Dosage: UNK, UNKNOWN
     Route: 065
  12. LEXAPRO [Concomitant]
     Dosage: 10 MG, DAILY (1/D)
     Route: 065
  13. FORTEO [Suspect]
     Dosage: 20 UG, DAILY (1/D)
     Dates: start: 20110107
  14. PROTONIX [Concomitant]
     Dosage: 40 MG, DAILY (1/D)
     Route: 065
  15. MULTIVITAMIN [Concomitant]
     Dosage: UNK, DAILY (1/D)
     Route: 065
  16. IRON [Concomitant]
     Dosage: UNK, UNKNOWN
     Route: 065
  17. CALCIUM [Concomitant]
     Dosage: UNK, UNKNOWN
     Route: 065

REACTIONS (5)
  - RESPIRATORY ARREST [None]
  - FALL [None]
  - DEVICE MISUSE [None]
  - CLOSTRIDIAL INFECTION [None]
  - INJECTION SITE HAEMATOMA [None]
